FAERS Safety Report 5279559-0 (Version None)
Quarter: 2007Q1

REPORT INFORMATION
  Report Type: 
  Country: None (occurrence: None)
  Receive Date: 20070322
  Receipt Date: 20070308
  Transmission Date: 20070707
  Serious: No
  Sender: FDA-Public Use
  Company Number: 2007-GWUS-0103

PATIENT
  Age: 68 Year
  Sex: Male
  Weight: 74.8435 kg

DRUGS (8)
  1. ALDARA [Suspect]
     Indication: ACTINIC KERATOSIS
     Dosage: APPLICATION - 3XW - TOPICAL
     Route: 061
     Dates: start: 20070101
  2. LANTUS [Concomitant]
  3. PREDNISONE [Concomitant]
  4. PROGRAF [Concomitant]
  5. (MYCOPHENOLATE)CELLCEPT [Concomitant]
  6. ASPIRIN [Concomitant]
  7. METOPROLOL SUCCINATE [Concomitant]
  8. (INSULIN/HUMAN)NOVOLIN [Concomitant]

REACTIONS (1)
  - KIDNEY TRANSPLANT REJECTION [None]
